FAERS Safety Report 22142115 (Version 1)
Quarter: 2023Q1

REPORT INFORMATION
  Report Type: Spontaneous
  Country: FR (occurrence: FR)
  Receive Date: 20230327
  Receipt Date: 20230327
  Transmission Date: 20230417
  Serious: Yes (Other)
  Sender: FDA-Public Use
  Company Number: None

PATIENT
  Age: 11 Year
  Sex: Male
  Weight: 27.6 kg

DRUGS (1)
  1. TRAMADOL HYDROCHLORIDE [Suspect]
     Active Substance: TRAMADOL HYDROCHLORIDE
     Indication: Headache
     Route: 065
     Dates: start: 20230220

REACTIONS (2)
  - Memory impairment [Unknown]
  - Hallucination [Unknown]

NARRATIVE: CASE EVENT DATE: 20230220
